FAERS Safety Report 5087121-8 (Version None)
Quarter: 2006Q3

REPORT INFORMATION
  Report Type: 
  Country: None (occurrence: None)
  Receive Date: 20060821
  Receipt Date: 20060807
  Transmission Date: 20061208
  Serious: Yes (Other)
  Sender: FDA-Public Use
  Company Number: 2006082612

PATIENT
  Sex: Male

DRUGS (4)
  1. TOLTERODINE TARTRATE [Suspect]
     Indication: HYPERTONIC BLADDER
     Dosage: 2 MG, ORAL
     Route: 048
     Dates: end: 20060520
  2. ALBYL-E (ACETYLSALICYLIC ACID, MAGNESIUM OXIDE) [Concomitant]
  3. XALATAN [Concomitant]
  4. AZOPT [Concomitant]

REACTIONS (2)
  - DRUG INEFFECTIVE [None]
  - HALLUCINATION, VISUAL [None]
